FAERS Safety Report 10730554 (Version 2)
Quarter: 2015Q1

REPORT INFORMATION
  Report Type: Spontaneous
  Country: IT (occurrence: IT)
  Receive Date: 20150122
  Receipt Date: 20150129
  Transmission Date: 20150721
  Serious: Yes (Hospitalization)
  Sender: FDA-Public Use
  Company Number: IT-TEVA-530131ISR

PATIENT
  Age: 29 Year
  Sex: Female

DRUGS (1)
  1. COPAXONE [Suspect]
     Active Substance: GLATIRAMER ACETATE
     Indication: MULTIPLE SCLEROSIS
     Dosage: 20 MILLIGRAM DAILY; 20 MG/ML
     Route: 058
     Dates: start: 20131002, end: 20131208

REACTIONS (11)
  - Loss of consciousness [Recovered/Resolved]
  - Vomiting [Recovered/Resolved]
  - Polycythaemia [Recovered/Resolved]
  - Hypokalaemia [Recovered/Resolved]
  - Alanine aminotransferase increased [Recovered/Resolved]
  - Aspartate aminotransferase increased [Recovered/Resolved]
  - Nausea [Recovered/Resolved]
  - Electrocardiogram ST-T change [Recovered/Resolved]
  - Feeling hot [Recovered/Resolved]
  - Leukocytosis [Recovered/Resolved]
  - Red blood cell abnormality [Unknown]

NARRATIVE: CASE EVENT DATE: 20131208
